FAERS Safety Report 5505111-5 (Version None)
Quarter: 2007Q4

REPORT INFORMATION
  Report Type: 
  Country: None (occurrence: None)
  Receive Date: 20071102
  Receipt Date: 20071030
  Transmission Date: 20080405
  Serious: Yes (Hospitalization)
  Sender: FDA-Public Use
  Company Number: FR-BRISTOL-MYERS SQUIBB COMPANY-13965603

PATIENT
  Age: 60 Year
  Sex: Male

DRUGS (1)
  1. MODITEN TABS [Suspect]
     Indication: DELUSIONAL DISORDER, PERSECUTORY TYPE
     Route: 048
     Dates: start: 20070918, end: 20070919

REACTIONS (5)
  - HYPONATRAEMIA [None]
  - MALAISE [None]
  - NAUSEA [None]
  - POLYDIPSIA [None]
  - VOMITING [None]
